FAERS Safety Report 5708611-8 (Version None)
Quarter: 2008Q2

REPORT INFORMATION
  Report Type: 
  Country: None (occurrence: None)
  Receive Date: 20080417
  Receipt Date: 20080407
  Transmission Date: 20081010
  Serious: Yes (Death)
  Sender: FDA-Public Use
  Company Number: IL-SANOFI-SYNTHELABO-A01200803836

PATIENT
  Age: 70 Year
  Sex: Male

DRUGS (4)
  1. ASPIRIN [Concomitant]
     Indication: CORONARY ARTERY BYPASS
     Route: 065
  2. ASPIRIN [Concomitant]
     Indication: ANGINA UNSTABLE
     Route: 065
  3. PLAVIX [Suspect]
     Indication: CORONARY ARTERY BYPASS
     Dosage: 300 MG ONCE FOLLOWED BY 75 MG DAILY
     Route: 048
  4. PLAVIX [Suspect]
     Indication: ANGINA UNSTABLE
     Dosage: 300 MG ONCE FOLLOWED BY 75 MG DAILY
     Route: 048

REACTIONS (3)
  - DRUG INEFFECTIVE [None]
  - OESOPHAGEAL VARICES HAEMORRHAGE [None]
  - PORTAL VEIN THROMBOSIS [None]
